FAERS Safety Report 4808585-8 (Version None)
Quarter: 2005Q4

REPORT INFORMATION
  Report Type: 
  Country: None (occurrence: None)
  Receive Date: 20051025
  Receipt Date: 20051013
  Transmission Date: 20060501
  Serious: Yes (Hospitalization)
  Sender: FDA-Public Use
  Company Number: FR-GLAXOSMITHKLINE-B0397448A

PATIENT
  Age: 12 Day
  Sex: Male
  Weight: 2.9 kg

DRUGS (2)
  1. AZANTAC [Suspect]
     Dosage: .6ML TWICE PER DAY
     Route: 048
     Dates: start: 20050823, end: 20050913
  2. PHOSPHALUGEL [Concomitant]
     Route: 048
     Dates: start: 20050823, end: 20050906

REACTIONS (4)
  - DECREASED APPETITE [None]
  - SOMNOLENCE [None]
  - TRANSAMINASES INCREASED [None]
  - WEIGHT DECREASED [None]
